FAERS Safety Report 7606960-X (Version None)
Quarter: 2011Q3

REPORT INFORMATION
  Report Type: 
  Country: None (occurrence: None)
  Receive Date: 20110712
  Receipt Date: 20110712
  Transmission Date: 20111222
  Serious: Yes (Disabling)
  Sender: FDA-Public Use
  Company Number: None

PATIENT
  Age: 46 Year
  Sex: Male
  Weight: 102.0593 kg

DRUGS (1)
  1. GOLD BOND MEDICATED FOOT MAXIMUM STRENGTH CHATTEM [Suspect]
     Indication: HYPERHIDROSIS
     Dates: start: 20110703, end: 20110704

REACTIONS (1)
  - SKIN EXFOLIATION [None]
